FAERS Safety Report 14269153 (Version 1)
Quarter: 2017Q4

REPORT INFORMATION
  Report Type: Spontaneous
  Country: US (occurrence: US)
  Receive Date: 20171211
  Receipt Date: 20171211
  Transmission Date: 20180321
  Serious: Yes (Death)
  Sender: FDA-Public Use
  Company Number: US-PERRIGO-17US030667

PATIENT
  Age: 37 Year
  Sex: Female

DRUGS (10)
  1. TAPENTADOL [Suspect]
     Active Substance: TAPENTADOL
     Indication: COMPLETED SUICIDE
     Dosage: UNK
     Route: 065
  2. ACETAMINOPHEN. [Suspect]
     Active Substance: ACETAMINOPHEN
     Indication: COMPLETED SUICIDE
     Dosage: UNK
     Route: 065
  3. OXYCODONE [Suspect]
     Active Substance: OXYCODONE
     Indication: COMPLETED SUICIDE
     Dosage: UNK
     Route: 065
  4. ALLERGY [Suspect]
     Active Substance: UNSPECIFIED INGREDIENT
     Indication: COMPLETED SUICIDE
     Dosage: UNK
     Route: 065
  5. CARBON MONOXIDE [Suspect]
     Active Substance: CARBON MONOXIDE
     Indication: COMPLETED SUICIDE
     Dosage: UNK
     Route: 055
  6. DIAZEPAM. [Suspect]
     Active Substance: DIAZEPAM
     Indication: COMPLETED SUICIDE
     Dosage: UNK
     Route: 065
  7. DEXTROMETHORPHAN [Suspect]
     Active Substance: DEXTROMETHORPHAN
     Indication: COMPLETED SUICIDE
     Dosage: UNK
     Route: 065
  8. DOXYLAMINE SUCCINATE. [Suspect]
     Active Substance: DOXYLAMINE SUCCINATE
     Indication: COMPLETED SUICIDE
     Dosage: UNK
     Route: 065
  9. ALCOHOL. [Suspect]
     Active Substance: ALCOHOL
     Indication: COMPLETED SUICIDE
     Dosage: UNK
     Route: 065
  10. AMPHETAMINE [Suspect]
     Active Substance: AMPHETAMINE
     Indication: COMPLETED SUICIDE
     Dosage: UNK
     Route: 065

REACTIONS (1)
  - Death [Fatal]
